FAERS Safety Report 11988566 (Version 2)
Quarter: 2016Q1

REPORT INFORMATION
  Report Type: Spontaneous
  Country: JP (occurrence: JP)
  Receive Date: 20160202
  Receipt Date: 20160210
  Transmission Date: 20160526
  Serious: Yes (Hospitalization)
  Sender: FDA-Public Use
  Company Number: JP-ROCHE-1690544

PATIENT
  Age: 6 Decade
  Sex: Female
  Weight: 69 kg

DRUGS (10)
  1. OXYCONTIN [Concomitant]
     Active Substance: OXYCODONE HYDROCHLORIDE
     Indication: BREAST CANCER
     Dosage: AMOUNT OF SINGLE-DOSE: 10 (UNIT UNCERTAINTY)
     Route: 048
     Dates: start: 20131206
  2. MAGMITT [Concomitant]
     Active Substance: MAGNESIUM OXIDE
     Indication: CONSTIPATION
     Dosage: AMOUNT OF SINGLE-DOSE: 500 (UNIT UNCERTAINTY)
     Route: 048
     Dates: start: 20131206
  3. KADCYLA [Suspect]
     Active Substance: ADO-TRASTUZUMAB EMTANSINE
     Indication: BREAST CANCER
     Dosage: MOST RECENT DOE PRIOR TO THE EVENT ON 26/NOV/2015
     Route: 041
     Dates: start: 20141209, end: 20151126
  4. TSUMURA GOSHAJINKIGAN [Concomitant]
     Active Substance: HERBALS
     Indication: NEUROPATHY PERIPHERAL
     Dosage: EXTRACT GRANULES FOR ETHICAL USE
     Route: 048
     Dates: start: 20140204
  5. ZOLEDRONIC ACID [Concomitant]
     Active Substance: ZOLEDRONIC ACID
     Dosage: DOSAGE IS UNCERTAIN.
     Route: 065
     Dates: start: 20140422
  6. TEPRENONE [Concomitant]
     Active Substance: TEPRENONE
     Indication: CHRONIC GASTRITIS
     Dosage: AMOUNT OF SINGLE-DOSE: 50 (UNIT UNCERTAINTY)
     Route: 048
     Dates: start: 20131113
  7. METOCLOPRAMIDE. [Concomitant]
     Active Substance: METOCLOPRAMIDE
     Indication: NAUSEA
     Dosage: AMOUNT OF SINGLE-DOSE: 5 (UNIT UNCERTAINTY)
     Route: 048
     Dates: start: 20131121
  8. LYRICA [Concomitant]
     Active Substance: PREGABALIN
     Indication: NEUROPATHY PERIPHERAL
     Dosage: AMOUNT OF SINGLE-DOSE: 75 (UNIT UNCERTAINTY)
     Route: 048
     Dates: start: 20131125
  9. LOXOPROFEN NA [Concomitant]
     Active Substance: LOXOPROFEN SODIUM
     Indication: CANCER PAIN
     Dosage: AMOUNT OF SINGLE-DOSE: 60 (UNIT UNCERTAINTY)
     Route: 048
     Dates: start: 20131113
  10. ZOLPIDEM TARTRATE. [Concomitant]
     Active Substance: ZOLPIDEM TARTRATE
     Indication: INSOMNIA
     Dosage: AMOUNT OF SINGLE-DOSE: 5 (UNIT UNCERTAINTY)
     Route: 048
     Dates: start: 20131210

REACTIONS (2)
  - Epistaxis [Recovering/Resolving]
  - Breast haemorrhage [Recovering/Resolving]

NARRATIVE: CASE EVENT DATE: 201511
